FAERS Safety Report 6686401-X (Version None)
Quarter: 2010Q2

REPORT INFORMATION
  Report Type: 
  Country: None (occurrence: None)
  Receive Date: 20100415
  Receipt Date: 20100405
  Transmission Date: 20101027
  Serious: Yes (Death, Hospitalization)
  Sender: FDA-Public Use
  Company Number: 2009AC000240

PATIENT
  Age: 75 Year
  Sex: Female

DRUGS (118)
  1. DIGOXIN [Suspect]
     Indication: ARRHYTHMIA
     Dosage: 0.125 MG; QD; PO
     Route: 048
     Dates: start: 20080123, end: 20080125
  2. DIGOXIN [Suspect]
     Dosage: 0.25 MG; QD; PO
     Route: 048
     Dates: start: 20080125, end: 20080505
  3. ASPIRIN [Concomitant]
  4. PLAVIX [Concomitant]
  5. COLACE [Concomitant]
  6. INSORA [Concomitant]
  7. LEXAPRO [Concomitant]
  8. FLONASE [Concomitant]
  9. NOVOLOG SLIDING SCALE AC AND HS [Concomitant]
  10. ATROVENT [Concomitant]
  11. XOPENEX [Concomitant]
  12. CLARITIN [Concomitant]
  13. TOPROL-XL [Concomitant]
  14. PROLONIX [Concomitant]
  15. PREDNISONE [Concomitant]
  16. ALDACE [Concomitant]
  17. FOLIC ACID [Concomitant]
  18. XANAX [Concomitant]
  19. METOPROLOL [Concomitant]
  20. CALCIUM [Concomitant]
  21. ATENOLOL [Concomitant]
  22. PHENERGAN [Concomitant]
  23. HYDROCODONE-APA [Concomitant]
  24. LYRICA [Concomitant]
  25. AMBIEN [Concomitant]
  26. SINGULAIR [Concomitant]
  27. ACTONEL [Concomitant]
  28. RHINOCORT [Concomitant]
  29. GLIPIZIDE [Concomitant]
  30. AEROBID [Concomitant]
  31. PREMARIN [Concomitant]
  32. REQUIP [Concomitant]
  33. SPIRIVA [Concomitant]
  34. ZYRTEC [Concomitant]
  35. CRESTOR [Concomitant]
  36. METOPROLOL SUCCINATE EXTENDED RELEASE [Concomitant]
  37. PAROXETINE HCL [Concomitant]
  38. PREVACID [Concomitant]
  39. MELOXICAM [Concomitant]
  40. BONIVA [Concomitant]
  41. ZOLPIDEM TARTRATE [Concomitant]
  42. ALPRAZOLAM [Concomitant]
  43. CEFDINIR [Concomitant]
  44. CHANTIX [Concomitant]
  45. PROMETHAZINE [Concomitant]
  46. GLIPIZIDE [Concomitant]
  47. RANITIDINE [Concomitant]
  48. METOCLOPRAMIDE HYDROCHLORIDE [Concomitant]
  49. ADVAIR DISKUS 100/50 [Concomitant]
  50. LISINOPRIL [Concomitant]
  51. AZITHROMYCIN [Concomitant]
  52. GUAIFEN-PHENYL [Concomitant]
  53. LORATADINE [Concomitant]
  54. PANTOPRAZOLE [Concomitant]
  55. FLUTICASONE PROPIONATE [Concomitant]
  56. DOCUSATE SODIUM [Concomitant]
  57. NOVOLOG [Concomitant]
  58. ALTACE [Concomitant]
  59. THEREMS-M [Concomitant]
  60. FORTICAL [Concomitant]
  61. TRAMADOL HCL [Concomitant]
  62. CARAFATE [Concomitant]
  63. GLYCOPYRROLATE [Concomitant]
  64. MEGESTROL ACETATE [Concomitant]
  65. NEXIUM [Concomitant]
  66. FUROSEMIDE [Concomitant]
  67. IPRATROPIUM ER [Concomitant]
  68. HUMALOG [Concomitant]
  69. XOPENEX [Concomitant]
  70. RHINOCORT [Concomitant]
  71. HYDROCODONE BITARTRATE [Concomitant]
  72. AZITHROMYCIN [Concomitant]
  73. ALPRAZOLAM [Concomitant]
  74. NEXIUM [Concomitant]
  75. ACETYLCYSTEINE [Concomitant]
  76. ADVAIR DISKUS 100/50 [Concomitant]
  77. DIOVAN [Concomitant]
  78. PREVACID [Concomitant]
  79. FISH OIL [Concomitant]
  80. DOXYCYCL [Concomitant]
  81. ROZEREM [Concomitant]
  82. LYRICA [Concomitant]
  83. REQUIP [Concomitant]
  84. HYDROCODONE BITARTRATE [Concomitant]
  85. ZYRTEC [Concomitant]
  86. AEROBID [Concomitant]
  87. ATENOLOL [Concomitant]
  88. LORTAB [Concomitant]
  89. ZOFRAN [Concomitant]
  90. MORPHINE [Concomitant]
  91. TYLENOL-500 [Concomitant]
  92. CLARITIN [Concomitant]
  93. VICODIN [Concomitant]
  94. ZOCOR [Concomitant]
  95. LORTAB [Concomitant]
  96. PREMARIN [Concomitant]
  97. OXYCONTIN [Concomitant]
  98. EFFEXOR [Concomitant]
  99. NEURONTIN [Concomitant]
  100. DIOVAN [Concomitant]
  101. ACTONEL [Concomitant]
  102. ADVAIR DISKUS 100/50 [Concomitant]
  103. PREVACID [Concomitant]
  104. LORCET-HD [Concomitant]
  105. PERCOCET [Concomitant]
  106. DARVOCET-N 100 [Concomitant]
  107. MIACALCIN [Concomitant]
  108. FOLIC ACID [Concomitant]
  109. MULTI-VITAMIN [Concomitant]
  110. INSPRA [Concomitant]
  111. MYCOSTATIN [Concomitant]
  112. LASIX [Concomitant]
  113. CEFTIN [Concomitant]
  114. REPLIVA [Concomitant]
  115. FLAGYL [Concomitant]
  116. NEXIUM [Concomitant]
  117. ULTRAM [Concomitant]
  118. MUCOMYST [Concomitant]

REACTIONS (51)
  - ACUTE MYOCARDIAL INFARCTION [None]
  - AGGRESSION [None]
  - ANAEMIA [None]
  - AORTIC DILATATION [None]
  - ARTHRITIS [None]
  - ATELECTASIS [None]
  - CARDIAC ARREST [None]
  - CARDIAC FAILURE CONGESTIVE [None]
  - CARDIO-RESPIRATORY ARREST [None]
  - CEREBRAL ATROPHY [None]
  - CHRONIC OBSTRUCTIVE PULMONARY DISEASE [None]
  - COLITIS ISCHAEMIC [None]
  - CONSTIPATION [None]
  - CORONARY ARTERY DISEASE [None]
  - CYSTITIS [None]
  - DEHYDRATION [None]
  - DIABETES MELLITUS [None]
  - EMPHYSEMA [None]
  - FLATULENCE [None]
  - GASTRIC ULCER [None]
  - GASTROENTERITIS [None]
  - HAEMATOCHEZIA [None]
  - HYPERHIDROSIS [None]
  - HYPERLIPIDAEMIA [None]
  - HYPOTENSION [None]
  - ILEUS [None]
  - INTERSTITIAL LUNG DISEASE [None]
  - LEFT VENTRICULAR DYSFUNCTION [None]
  - LOWER GASTROINTESTINAL HAEMORRHAGE [None]
  - LYMPHADENOPATHY [None]
  - MYALGIA [None]
  - OSTEOPOROSIS [None]
  - PERICARDIAL EFFUSION [None]
  - PERIPHERAL ISCHAEMIA [None]
  - PERIPHERAL VASCULAR DISORDER [None]
  - PLEURAL EFFUSION [None]
  - PULMONARY HYPERTENSION [None]
  - RECTAL POLYP [None]
  - RENAL FAILURE ACUTE [None]
  - RESPIRATORY FAILURE [None]
  - RIGHT ATRIAL DILATATION [None]
  - SEPTIC SHOCK [None]
  - SINUS TACHYCARDIA [None]
  - SINUSITIS [None]
  - THERAPEUTIC AGENT TOXICITY [None]
  - THYMOMA [None]
  - TRICUSPID VALVE INCOMPETENCE [None]
  - URINARY TRACT INFECTION [None]
  - UROSEPSIS [None]
  - VENTRICULAR FIBRILLATION [None]
  - WEIGHT DECREASED [None]
